FAERS Safety Report 8329495 (Version 4)
Quarter: 2012Q4

REPORT INFORMATION
  Report Type: 
  Country: US (occurrence: US)
  Receive Date: 20120110
  Receipt Date: 20120904
  Transmission Date: 20130627
  Serious: Yes (Life-Threatening, Hospitalization, Disabling, Other)
  Sender: FDA-Public Use
  Company Number: US-ACTELION-A-US2011-55595

PATIENT
  Age: 59 Year
  Sex: Male
  Weight: 122 kg

DRUGS (7)
  1. VELETRI [Suspect]
     Indication: PULMONARY ARTERIAL HYPERTENSION
     Dosage: 2 ng/kg, per min
     Route: 048
     Dates: start: 20111006
  2. TRACLEER [Suspect]
     Indication: PULMONARY ARTERIAL HYPERTENSION
     Dosage: 62.5 mg, bid
     Route: 048
     Dates: start: 20030821
  3. VENTAVIS [Suspect]
     Indication: PULMONARY ARTERIAL HYPERTENSION
     Dosage: 5 ug, qid
     Route: 055
     Dates: start: 20061220, end: 20111110
  4. COUMADIN [Concomitant]
  5. CALCIUM CHANNEL BLOCKERS [Concomitant]
  6. DIGITEK [Concomitant]
  7. ASPIRIN [Concomitant]

REACTIONS (6)
  - Fluid retention [Recovering/Resolving]
  - Patent ductus arteriosus [Unknown]
  - Pulmonary arterial hypertension [Recovering/Resolving]
  - Cor pulmonale [Recovering/Resolving]
  - Weight increased [Recovering/Resolving]
  - Dyspnoea [Recovering/Resolving]
